FAERS Safety Report 9316262 (Version 3)
Quarter: 2013Q3

REPORT INFORMATION
  Report Type: Report from Study
  Country: TH (occurrence: TH)
  Receive Date: 20130530
  Receipt Date: 20130821
  Transmission Date: 20140515
  Serious: Yes (Hospitalization, Other)
  Sender: FDA-Public Use
  Company Number: PHHY2013TH041651

PATIENT
  Age: 49 Year
  Sex: Female

DRUGS (2)
  1. ZOMETA [Suspect]
     Indication: METASTASES TO BONE
     Dosage: 4 MG/TIME/ MONTH
     Route: 041
  2. ZOMETA [Suspect]
     Dosage: 4 MG/TIME/ MONTH
     Route: 041
     Dates: start: 20130404

REACTIONS (14)
  - Osteonecrosis of jaw [Unknown]
  - Exostosis [Not Recovered/Not Resolved]
  - Tooth impacted [Not Recovered/Not Resolved]
  - Bone disorder [Not Recovered/Not Resolved]
  - Blister [Not Recovered/Not Resolved]
  - Purulent discharge [Unknown]
  - Gingival erythema [Unknown]
  - Gingival pain [Unknown]
  - Mastication disorder [Unknown]
  - Loose tooth [Unknown]
  - Toothache [Not Recovered/Not Resolved]
  - Gingival injury [Unknown]
  - Oral disorder [Unknown]
  - Bruxism [Unknown]
